FAERS Safety Report 6064596-9 (Version None)
Quarter: 2009Q1

REPORT INFORMATION
  Report Type: 
  Country: None (occurrence: None)
  Receive Date: 20090204
  Receipt Date: 20090130
  Transmission Date: 20090719
  Serious: Yes (Other)
  Sender: FDA-Public Use
  Company Number: B0556709A

PATIENT
  Age: 6 Year
  Sex: Female

DRUGS (1)
  1. RELENZA [Suspect]
     Indication: INFLUENZA
     Dosage: 10MG SINGLE DOSE
     Route: 055
     Dates: start: 20090126

REACTIONS (2)
  - FEAR [None]
  - HALLUCINATION [None]
